FAERS Safety Report 5649013-2 (Version None)
Quarter: 2008Q1

REPORT INFORMATION
  Report Type: 
  Country: None (occurrence: None)
  Receive Date: 20080304
  Receipt Date: 20080222
  Transmission Date: 20080703
  Serious: Yes (Hospitalization)
  Sender: FDA-Public Use
  Company Number: US-JNJFOC-20080206378

PATIENT
  Sex: Male
  Weight: 86.18 kg

DRUGS (1)
  1. RISPERDAL CONSTA [Suspect]
     Indication: POST-TRAUMATIC STRESS DISORDER
     Route: 030

REACTIONS (8)
  - FEELING ABNORMAL [None]
  - HEARING IMPAIRED [None]
  - HYPERHIDROSIS [None]
  - INCORRECT ROUTE OF DRUG ADMINISTRATION [None]
  - INSOMNIA [None]
  - LUNG INFECTION [None]
  - ORCHITIS [None]
  - RESPIRATORY DISORDER [None]
